FAERS Safety Report 22228518 (Version 1)
Quarter: 2023Q2

REPORT INFORMATION
  Report Type: Spontaneous
  Country: US (occurrence: None)
  Receive Date: 20230418
  Receipt Date: 20230418
  Transmission Date: 20230722
  Serious: Yes (Hospitalization)
  Sender: FDA-Public Use
  Company Number: None

PATIENT
  Age: 18 Year
  Sex: Female
  Weight: 60 kg

DRUGS (5)
  1. OXYTOCIN [Suspect]
     Active Substance: OXYTOCIN
     Indication: Irritability
     Dosage: 0.5 ML ONCE PER WEEK  NASAL ?
     Route: 045
     Dates: start: 20230301, end: 20230324
  2. RISPERIDONE [Concomitant]
     Active Substance: RISPERIDONE
     Dates: start: 20200101
  3. GUANFACINE [Concomitant]
     Active Substance: GUANFACINE
     Dates: start: 20170101
  4. MELATONIN [Concomitant]
     Active Substance: MELATONIN
     Dates: start: 20161201
  5. TRAZODONE [Concomitant]
     Active Substance: TRAZODONE HYDROCHLORIDE
     Dates: start: 20220422

REACTIONS (2)
  - Suicide attempt [None]
  - Agitation [None]

NARRATIVE: CASE EVENT DATE: 20230408
